FAERS Safety Report 6722710-3 (Version None)
Quarter: 2010Q2

REPORT INFORMATION
  Report Type: 
  Country: None (occurrence: None)
  Receive Date: 20100512
  Receipt Date: 20100503
  Transmission Date: 20101027
  Serious: Yes (Other)
  Sender: FDA-Public Use
  Company Number: AT-GENENTECH-301674

PATIENT

DRUGS (6)
  1. ACTIVASE [Suspect]
     Indication: RETINAL HAEMORRHAGE
     Dosage: 0.05 ML, UNK
     Route: 031
  2. ACTIVASE [Suspect]
     Indication: MACULAR DEGENERATION
  3. LUCENTIS [Suspect]
     Indication: RETINAL HAEMORRHAGE
     Dosage: 0.05 ML, UNK
  4. LUCENTIS [Suspect]
     Indication: MACULAR DEGENERATION
  5. SULFUR HEXAFLUORIDE GAS [Concomitant]
     Indication: RETINAL HAEMORRHAGE
     Dosage: 0.5 ML, UNK
  6. SULFUR HEXAFLUORIDE GAS [Concomitant]
     Indication: MACULAR DEGENERATION

REACTIONS (2)
  - CORNEAL EROSION [None]
  - INTRAOCULAR PRESSURE INCREASED [None]
